FAERS Safety Report 4982798-7 (Version None)
Quarter: 2006Q2

REPORT INFORMATION
  Report Type: 
  Country: None (occurrence: None)
  Receive Date: 20060425
  Receipt Date: 20060424
  Transmission Date: 20061013
  Serious: Yes (Hospitalization)
  Sender: FDA-Public Use
  Company Number: US-MERCK-0604USA03614

PATIENT
  Age: 54 Year
  Sex: Female

DRUGS (7)
  1. FOSAMAX [Suspect]
     Indication: OSTEOPOROSIS
     Route: 048
     Dates: start: 20040101
  2. BETASERON [Concomitant]
     Route: 065
  3. PREMARIN [Concomitant]
     Route: 065
  4. BACLOFEN [Concomitant]
     Route: 065
  5. DITROPAN XL [Concomitant]
     Route: 065
  6. TEMAZEPAM [Concomitant]
     Route: 065
  7. TIZANIDINE HYDROCHLORIDE [Concomitant]
     Route: 065

REACTIONS (1)
  - WOUND [None]
